FAERS Safety Report 5202643-4 (Version None)
Quarter: 2006Q4

REPORT INFORMATION
  Report Type: 
  Country: None (occurrence: None)
  Receive Date: 20061018
  Receipt Date: 20050812
  Transmission Date: 20070319
  Serious: Yes (Hospitalization)
  Sender: FDA-Public Use
  Company Number: PHEH2005US08784

PATIENT
  Age: 64 Year
  Sex: Male

DRUGS (11)
  1. ZOMETA [Suspect]
     Indication: METASTASES TO BONE
     Dates: start: 20050609
  2. ALTACE [Concomitant]
  3. IBUPROFEN [Concomitant]
  4. LASIX [Concomitant]
  5. LIPITOR [Concomitant]
  6. ZETIA [Concomitant]
  7. GLIPIZIDE [Concomitant]
  8. LORTAB [Concomitant]
  9. PROZAC [Concomitant]
  10. DETROL - SLOW RELEASE (TOLTERODINE L-TARTRATE) [Concomitant]
  11. LUPRON [Concomitant]

REACTIONS (7)
  - ASTHENIA [None]
  - BLOOD CREATININE INCREASED [None]
  - BLOOD UREA INCREASED [None]
  - HYPERTENSION [None]
  - MALAISE [None]
  - RENAL FAILURE [None]
  - SKIN LESION [None]
